FAERS Safety Report 9626862 (Version 2)
Quarter: 2013Q4

REPORT INFORMATION
  Report Type: Spontaneous
  Country: IT (occurrence: IT)
  Receive Date: 20131016
  Receipt Date: 20131024
  Transmission Date: 20140711
  Serious: Yes (Hospitalization)
  Sender: FDA-Public Use
  Company Number: IT-ASTRAZENECA-2013SE74846

PATIENT
  Age: 19416 Day
  Sex: Female

DRUGS (12)
  1. SEROQUEL [Suspect]
     Indication: DRUG ABUSE
     Route: 048
     Dates: start: 20130712, end: 20130712
  2. SEROQUEL [Suspect]
     Indication: INSOMNIA
     Route: 048
     Dates: start: 20130712, end: 20130712
  3. SEROQUEL [Suspect]
     Indication: BIPOLAR DISORDER
     Route: 048
     Dates: start: 20130712, end: 20130712
  4. SERTRALINE [Suspect]
     Indication: DRUG ABUSE
     Route: 048
     Dates: start: 20130712, end: 20130712
  5. SERTRALINE [Suspect]
     Indication: INSOMNIA
     Route: 048
     Dates: start: 20130712, end: 20130712
  6. SERTRALINE [Suspect]
     Indication: BIPOLAR DISORDER
     Route: 048
     Dates: start: 20130712, end: 20130712
  7. FELISON [Suspect]
     Indication: DRUG ABUSE
     Route: 048
     Dates: start: 20130712, end: 20130712
  8. FELISON [Suspect]
     Indication: INSOMNIA
     Route: 048
     Dates: start: 20130712, end: 20130712
  9. FELISON [Suspect]
     Indication: BIPOLAR DISORDER
     Route: 048
     Dates: start: 20130712, end: 20130712
  10. XANAX [Suspect]
     Indication: DRUG ABUSE
     Route: 048
     Dates: start: 20130712, end: 20130712
  11. XANAX [Suspect]
     Indication: INSOMNIA
     Route: 048
     Dates: start: 20130712, end: 20130712
  12. XANAX [Suspect]
     Indication: BIPOLAR DISORDER
     Route: 048
     Dates: start: 20130712, end: 20130712

REACTIONS (3)
  - Bradyphrenia [Recovered/Resolved]
  - Drug abuse [Recovered/Resolved]
  - Bradykinesia [Recovered/Resolved]
